FAERS Safety Report 17029349 (Version 1)
Quarter: 2019Q4

REPORT INFORMATION
  Report Type: Spontaneous
  Country: US (occurrence: US)
  Receive Date: 20191114
  Receipt Date: 20191114
  Transmission Date: 20200122
  Serious: No
  Sender: FDA-Public Use
  Company Number: US-PAREXEL INTERNATIONAL-2019US009415

PATIENT
  Age: 19 Year
  Sex: Male

DRUGS (1)
  1. RHOFADE [Suspect]
     Active Substance: OXYMETAZOLINE HYDROCHLORIDE
     Indication: ERYTHEMA
     Dosage: 1 DF
     Route: 061
     Dates: start: 2019

REACTIONS (2)
  - Application site erythema [Recovering/Resolving]
  - Application site inflammation [Recovering/Resolving]

NARRATIVE: CASE EVENT DATE: 20190910
